FAERS Safety Report 6492020-0 (Version None)
Quarter: 2009Q4

REPORT INFORMATION
  Report Type: 
  Country: None (occurrence: None)
  Receive Date: 20091125
  Receipt Date: 20090930
  Transmission Date: 20100525
  Serious: Yes (Other)
  Sender: FDA-Public Use
  Company Number: 2009BH014825

PATIENT
  Age: 83 Year
  Sex: Male

DRUGS (18)
  1. DIANEAL [Suspect]
     Indication: PERITONEAL DIALYSIS
     Dosage: 11.5 L ; UNK ; IP
     Route: 033
     Dates: start: 20090901
  2. HEPARIN [Concomitant]
  3. LORTAB [Concomitant]
  4. AMBIEN [Concomitant]
  5. ASPIRIN [Concomitant]
  6. DOCUSATE SODIUM [Concomitant]
  7. FERROUS GLUCONATE [Concomitant]
  8. FUROSEMIDE [Concomitant]
  9. GABAPENTIN [Concomitant]
  10. GEMFIBROZIL [Concomitant]
  11. METOLAZONE [Concomitant]
  12. NEPHROCAPS [Concomitant]
  13. OMEPRAZOLE [Concomitant]
  14. PHOSLO [Concomitant]
  15. POLYETHYLENE GLYCOL [Concomitant]
  16. ROSUVASTATIN [Concomitant]
  17. ZEMPLAR [Concomitant]
  18. EPOGEN [Concomitant]

REACTIONS (1)
  - PERITONEAL CLOUDY EFFLUENT [None]
